FAERS Safety Report 4976941-3 (Version None)
Quarter: 2006Q2

REPORT INFORMATION
  Report Type: 
  Country: None (occurrence: None)
  Receive Date: 20060412
  Receipt Date: 20060331
  Transmission Date: 20061013
  Serious: Yes (Other)
  Sender: FDA-Public Use
  Company Number: T200600142

PATIENT
  Age: 77 Year
  Sex: Female

DRUGS (1)
  1. OPTIRAY 320 [Suspect]
     Indication: COMPUTERISED TOMOGRAM HEAD
     Dosage: 100 ML SINGLE INTRAVENOUS
     Route: 042
     Dates: start: 20060224, end: 20060224

REACTIONS (2)
  - CHEST DISCOMFORT [None]
  - DYSPNOEA [None]
